FAERS Safety Report 8101183 (Version 4)
Quarter: 2012Q4

REPORT INFORMATION
  Report Type: Spontaneous
  Country: GB (occurrence: None)
  Receive Date: 20110815
  Receipt Date: 20120822
  Transmission Date: 20130627
  Serious: Yes (Life-Threatening)
  Sender: FDA-Public Use
  Company Number: 2011AP001699

PATIENT
  Age: 43 Year
  Sex: Female

DRUGS (8)
  1. LEFLUNOMIDE [Suspect]
     Indication: PSORIATIC ARTHRITIS
     Dosage: PO
     Route: 048
     Dates: start: 20031229, end: 20110707
  2. CETIRIZINE [Concomitant]
  3. HARPAGOPHYTUM PRTOCUMBENS (HARPAGOPHYTUM PROCUMBENS) [Concomitant]
  4. ETODOLAC [Concomitant]
  5. LANSOPRAZOLE [Concomitant]
  6. METHOTREXATE [Concomitant]
  7. SULPHASLAZINE (SULPHASLAZINE) [Concomitant]
  8. CONTRACEPTIVES (CONTRACEPTIVES) [Concomitant]

REACTIONS (3)
  - Breast cancer metastatic [None]
  - Oestrogen receptor assay positive [None]
  - Progesterone receptor assay positive [None]
